FAERS Safety Report 9668112 (Version 2)
Quarter: 2014Q4

REPORT INFORMATION
  Report Type: Report from Study
  Country: VE (occurrence: VE)
  Receive Date: 20131104
  Receipt Date: 20141024
  Transmission Date: 20150529
  Serious: Yes (Death, Other)
  Sender: FDA-Public Use
  Company Number: VE-ABBVIE-13P-178-1165579-00

PATIENT
  Age: 64 Year
  Sex: Female

DRUGS (1)
  1. ZEMPLAR [Suspect]
     Active Substance: PARICALCITOL
     Indication: RENAL FAILURE
     Route: 065
     Dates: start: 201112, end: 201306

REACTIONS (2)
  - Sudden death [Fatal]
  - Diabetic foot infection [Unknown]

NARRATIVE: CASE EVENT DATE: 20130620
